FAERS Safety Report 22810753 (Version 2)
Quarter: 2024Q3

REPORT INFORMATION
  Report Type: Spontaneous
  Country: DE (occurrence: DE)
  Receive Date: 20230810
  Receipt Date: 20240712
  Transmission Date: 20241017
  Serious: Yes (Other)
  Sender: MYLAN
  Company Number: DE-ROCHE-3387750

PATIENT
  Age: 40 Year
  Sex: Female

DRUGS (8)
  1. TRASTUZUMAB [Suspect]
     Active Substance: TRASTUZUMAB
     Indication: Breast cancer metastatic
     Dosage: UNK
     Route: 065
  2. TRASTUZUMAB [Suspect]
     Active Substance: TRASTUZUMAB
     Indication: HER2 positive breast cancer
     Dosage: UNK (6 CYCLES)
     Route: 065
     Dates: start: 2012
  3. DOCETAXEL [Suspect]
     Active Substance: DOCETAXEL\DOCETAXEL ANHYDROUS
     Indication: Breast cancer metastatic
     Dosage: UNK
     Route: 065
  4. DOCETAXEL [Suspect]
     Active Substance: DOCETAXEL\DOCETAXEL ANHYDROUS
     Indication: HER2 positive breast cancer
     Dosage: UNK (6 CYCLES)
     Route: 065
     Dates: start: 2012
  5. CARBOPLATIN [Suspect]
     Active Substance: CARBOPLATIN
     Indication: Breast cancer metastatic
     Dosage: UNK
     Route: 065
  6. CARBOPLATIN [Suspect]
     Active Substance: CARBOPLATIN
     Indication: HER2 positive breast cancer
     Dosage: UNK (6 CYCLES )
     Route: 065
     Dates: start: 2012
  7. IMIQUIMOD [Concomitant]
     Active Substance: IMIQUIMOD
     Indication: HER2 positive breast cancer
     Dosage: 250 MILLIGRAM, UNK
     Route: 058
  8. NIVOLUMAB [Concomitant]
     Active Substance: NIVOLUMAB
     Indication: HER2 positive breast cancer
     Dosage: 1300 MICROGRAM, UNK
     Route: 058

REACTIONS (4)
  - Disease progression [Unknown]
  - Metastases to liver [Unknown]
  - Drug ineffective [Unknown]
  - Injection site reaction [Unknown]
